FAERS Safety Report 16614319 (Version 1)
Quarter: 2019Q3

REPORT INFORMATION
  Report Type: Spontaneous
  Country: US (occurrence: US)
  Receive Date: 20190723
  Receipt Date: 20190723
  Transmission Date: 20191004
  Serious: No
  Sender: FDA-Public Use
  Company Number: US-ABBVIE-19S-163-2745193-00

PATIENT
  Sex: Female

DRUGS (1)
  1. ORILISSA [Suspect]
     Active Substance: ELAGOLIX SODIUM
     Indication: PRODUCT USED FOR UNKNOWN INDICATION
     Route: 048

REACTIONS (6)
  - Insomnia [Unknown]
  - Arthralgia [Unknown]
  - Headache [Unknown]
  - Initial insomnia [Unknown]
  - Drug ineffective [Unknown]
  - Night sweats [Unknown]
